FAERS Safety Report 6686235-6 (Version None)
Quarter: 2010Q2

REPORT INFORMATION
  Report Type: 
  Country: None (occurrence: None)
  Receive Date: 20100414
  Receipt Date: 20100331
  Transmission Date: 20101027
  Serious: Yes (Hospitalization)
  Sender: FDA-Public Use
  Company Number: 8053245

PATIENT
  Sex: Male
  Weight: 67.8 kg

DRUGS (1)
  1. CERTOLIZUMAB PEGOL (CERTOLIZUMAB PEGOL) [Suspect]
     Indication: RHEUMATOID ARTHRITIS
     Dosage: 400 MG, ONCE MONTHLY SUBCUTANEOUS
     Route: 058
     Dates: start: 20030829

REACTIONS (11)
  - BENIGN PROSTATIC HYPERPLASIA [None]
  - BLOOD GLUCOSE INCREASED [None]
  - BLOOD URINE PRESENT [None]
  - C-REACTIVE PROTEIN INCREASED [None]
  - DIARRHOEA [None]
  - HAEMATURIA [None]
  - HEART RATE INCREASED [None]
  - MALAISE [None]
  - PROTEIN URINE PRESENT [None]
  - URINARY TRACT INFECTION ENTEROCOCCAL [None]
  - WHITE BLOOD CELLS URINE POSITIVE [None]
